FAERS Safety Report 12873359 (Version 1)
Quarter: 2016Q4

REPORT INFORMATION
  Report Type: Spontaneous
  Country: US (occurrence: US)
  Receive Date: 20161021
  Receipt Date: 20161021
  Transmission Date: 20170207
  Serious: No
  Sender: FDA-Public Use
  Company Number: US-ALLERGAN-1517816US

PATIENT
  Age: 84 Year
  Sex: Female

DRUGS (4)
  1. NORVASC [Concomitant]
     Active Substance: AMLODIPINE BESYLATE
     Indication: BLOOD PRESSURE MEASUREMENT
     Route: 048
  2. FML [Suspect]
     Active Substance: FLUOROMETHOLONE
     Indication: EYELIDS PRURITUS
     Dosage: UNK, QID
     Route: 061
     Dates: start: 20150812, end: 20150902
  3. GLIPIZIDE. [Concomitant]
     Active Substance: GLIPIZIDE
     Indication: DIABETES MELLITUS
     Route: 048
  4. FML [Suspect]
     Active Substance: FLUOROMETHOLONE
     Indication: DRY EYE

REACTIONS (4)
  - Off label use [Unknown]
  - Erythema of eyelid [Not Recovered/Not Resolved]
  - Eye disorder [Not Recovered/Not Resolved]
  - Eyelid oedema [Not Recovered/Not Resolved]
